FAERS Safety Report 14029872 (Version 1)
Quarter: 2017Q3

REPORT INFORMATION
  Report Type: Spontaneous
  Country: US (occurrence: US)
  Receive Date: 20170930
  Receipt Date: 20170930
  Transmission Date: 20171128
  Serious: No
  Sender: FDA-Public Use
  Company Number: US-SA-2017SA112797

PATIENT
  Age: 55 Year
  Sex: Male

DRUGS (12)
  1. AUBAGIO [Suspect]
     Active Substance: TERIFLUNOMIDE
     Indication: MULTIPLE SCLEROSIS
     Route: 048
  2. AMPYRA [Suspect]
     Active Substance: DALFAMPRIDINE
     Indication: MULTIPLE SCLEROSIS
     Route: 048
  3. AMPYRA [Suspect]
     Active Substance: DALFAMPRIDINE
     Indication: MULTIPLE SCLEROSIS
     Route: 048
  4. VITAMIN E [Concomitant]
     Active Substance: .ALPHA.-TOCOPHEROL
  5. VITAMIN B1 [Concomitant]
     Active Substance: THIAMINE HYDROCHLORIDE
  6. BACLOFEN. [Concomitant]
     Active Substance: BACLOFEN
  7. PYRIDOXINE [Concomitant]
     Active Substance: PYRIDOXINE
  8. RIBOFLAVIN [Concomitant]
     Active Substance: RIBOFLAVIN
  9. VITAMIN D [Concomitant]
     Active Substance: CHOLECALCIFEROL
  10. RETINOL [Concomitant]
     Active Substance: RETINOL
  11. VITAMIN D [Concomitant]
     Active Substance: CHOLECALCIFEROL
  12. AUBAGIO [Suspect]
     Active Substance: TERIFLUNOMIDE
     Indication: MULTIPLE SCLEROSIS
     Route: 048

REACTIONS (5)
  - Memory impairment [Unknown]
  - Influenza [Unknown]
  - Gait disturbance [Unknown]
  - Condition aggravated [Unknown]
  - Drug dose omission [Unknown]

NARRATIVE: CASE EVENT DATE: 201706
